FAERS Safety Report 9816971 (Version 1)
Quarter: 2014Q1

REPORT INFORMATION
  Report Type: Spontaneous
  Country: FR (occurrence: FR)
  Receive Date: 20140114
  Receipt Date: 20140114
  Transmission Date: 20141002
  Serious: Yes (Disabling)
  Sender: FDA-Public Use
  Company Number: FR-GLAXOSMITHKLINE-B0950483A

PATIENT
  Age: 78 Year
  Sex: Male
  Weight: 66 kg

DRUGS (3)
  1. AVODART [Suspect]
     Indication: BENIGN PROSTATIC HYPERPLASIA
     Dosage: .5MG AT NIGHT
     Route: 048
     Dates: start: 20131126, end: 20131129
  2. INDAPAMIDE + PERINDOPRIL [Concomitant]
     Indication: HYPERTENSION
     Dosage: .5TAB IN THE MORNING
     Route: 048
  3. LAMALINE [Concomitant]
     Indication: HEADACHE
     Dates: start: 201309

REACTIONS (9)
  - Visual impairment [Not Recovered/Not Resolved]
  - IIIrd nerve paralysis [Unknown]
  - Cerebral atrophy [Unknown]
  - Headache [Unknown]
  - Diplopia [Unknown]
  - Eye pain [Unknown]
  - Eyelid disorder [Unknown]
  - Strabismus [Unknown]
  - Arachnoid cyst [Unknown]
